FAERS Safety Report 6056909-9 (Version None)
Quarter: 2009Q1

REPORT INFORMATION
  Report Type: 
  Country: None (occurrence: None)
  Receive Date: 20090129
  Receipt Date: 20090126
  Transmission Date: 20090719
  Serious: Yes (Other)
  Sender: FDA-Public Use
  Company Number: B0555909A

PATIENT
  Age: 12 Year
  Sex: Male

DRUGS (1)
  1. RELENZA [Suspect]
     Indication: INFLUENZA
     Dosage: 10MG TWICE PER DAY
     Route: 055
     Dates: start: 20081201

REACTIONS (4)
  - DIZZINESS [None]
  - FALL [None]
  - GAIT DISTURBANCE [None]
  - LOSS OF CONSCIOUSNESS [None]
